FAERS Safety Report 13577186 (Version 3)
Quarter: 2017Q3

REPORT INFORMATION
  Report Type: Spontaneous
  Country: BR (occurrence: BR)
  Receive Date: 20170524
  Receipt Date: 20170828
  Transmission Date: 20171127
  Serious: Yes (Other)
  Sender: FDA-Public Use
  Company Number: BR-009507513-1705BRA010333

PATIENT
  Sex: Female
  Weight: 75 kg

DRUGS (6)
  1. ALLEGRA [Concomitant]
     Active Substance: FEXOFENADINE HYDROCHLORIDE
     Indication: RHINITIS
     Dosage: 120 MG TABLET, QD
     Route: 048
  2. RENITEC [Suspect]
     Active Substance: ENALAPRIL MALEATE
     Indication: HYPERTENSION
     Dosage: 10 MG TABLET, BID (1 TABLET IN THE MORNING AND 1 TABLET IN THE EVENING)
     Route: 048
     Dates: end: 201703
  3. FOSAMAX [Suspect]
     Active Substance: ALENDRONATE SODIUM
     Indication: BLOOD CHOLESTEROL INCREASED
     Dosage: 70 MG TABLET PER DAY
     Route: 048
  4. RENITEC [Suspect]
     Active Substance: ENALAPRIL MALEATE
     Dosage: 2 TABLETS OF 10MG IN THE MORNING AND 2 TABLETS OF10MG AT NIGHT
     Route: 048
     Dates: start: 201703
  5. SYNTHROID [Concomitant]
     Active Substance: LEVOTHYROXINE SODIUM
     Indication: HYPOTHYROIDISM
     Dosage: 88MCG TABLET PER DAY
     Route: 048
     Dates: start: 1999
  6. FOSAMAX [Suspect]
     Active Substance: ALENDRONATE SODIUM
     Indication: ARTERIOSCLEROSIS

REACTIONS (7)
  - Nervousness [Not Recovered/Not Resolved]
  - Hypotension [Unknown]
  - Intentional product misuse [Unknown]
  - Hypertension [Not Recovered/Not Resolved]
  - Blood cholesterol increased [Unknown]
  - Overdose [Unknown]
  - Product use in unapproved indication [Unknown]

NARRATIVE: CASE EVENT DATE: 201703
